FAERS Safety Report 17030044 (Version 1)
Quarter: 2019Q4

REPORT INFORMATION
  Report Type: Spontaneous
  Country: US (occurrence: US)
  Receive Date: 20191011
  Receipt Date: 20191011
  Transmission Date: 20200122
  Serious: No
  Sender: FDA-Public Use
  Company Number: None

PATIENT
  Age: 55 Year
  Sex: Female

DRUGS (2)
  1. FASLODEX [Concomitant]
     Active Substance: FULVESTRANT
  2. PIQRAY [Suspect]
     Active Substance: ALPELISIB
     Indication: NEOPLASM MALIGNANT
     Route: 048
     Dates: start: 20190920, end: 20191009

REACTIONS (2)
  - Therapy change [None]
  - Adverse event [None]

NARRATIVE: CASE EVENT DATE: 20191009
